FAERS Safety Report 4980655-3 (Version None)
Quarter: 2006Q2

REPORT INFORMATION
  Report Type: 
  Country: None (occurrence: None)
  Receive Date: 20060424
  Receipt Date: 20060320
  Transmission Date: 20061013
  Serious: Yes (Hospitalization)
  Sender: FDA-Public Use
  Company Number: IT-BRISTOL-MYERS SQUIBB COMPANY-13320874

PATIENT
  Age: 73 Year
  Sex: Female

DRUGS (7)
  1. COUMADIN [Suspect]
     Indication: ATRIAL FIBRILLATION
     Dosage: INTERRUPTED ON 07-JAN-2006
     Route: 048
     Dates: start: 20030101
  2. LASIX [Concomitant]
  3. LANOXIN [Concomitant]
  4. TAPAZOLE [Concomitant]
  5. ALDACTONE [Concomitant]
  6. ENALAPRIL MALEATE [Concomitant]
  7. METFORMIN HYDROCHLORIDE [Concomitant]

REACTIONS (5)
  - ANAEMIA [None]
  - HAEMATEMESIS [None]
  - INTERNATIONAL NORMALISED RATIO INCREASED [None]
  - MELAENA [None]
  - PROTHROMBIN TIME SHORTENED [None]
